FAERS Safety Report 17554631 (Version 1)
Quarter: 2020Q1

REPORT INFORMATION
  Report Type: Spontaneous
  Country: IT (occurrence: IT)
  Receive Date: 20200318
  Receipt Date: 20200318
  Transmission Date: 20200409
  Serious: Yes (Other)
  Sender: FDA-Public Use
  Company Number: NVSC2020IT070200

PATIENT
  Age: 54 Year
  Sex: Female

DRUGS (1)
  1. AMOXICILLIN. [Suspect]
     Active Substance: AMOXICILLIN
     Indication: ACCIDENTAL EXPOSURE TO PRODUCT
     Dosage: 1 DF, TOTAL
     Route: 003
     Dates: start: 20190930, end: 20190930

REACTIONS (4)
  - Hypersensitivity [Recovered/Resolved]
  - Loss of consciousness [Recovered/Resolved]
  - Paraesthesia oral [Recovered/Resolved]
  - Dyspnoea [Recovered/Resolved]

NARRATIVE: CASE EVENT DATE: 20190930
